FAERS Safety Report 14696150 (Version 1)
Quarter: 2018Q1

REPORT INFORMATION
  Report Type: Spontaneous
  Country: US (occurrence: US)
  Receive Date: 20180329
  Receipt Date: 20180329
  Transmission Date: 20180509
  Serious: No
  Sender: FDA-Public Use
  Company Number: US-SA-2017SA109216

PATIENT
  Age: 58 Year
  Sex: Male

DRUGS (1)
  1. ALLEGRA D-12 HOUR [Suspect]
     Active Substance: FEXOFENADINE HYDROCHLORIDE\PSEUDOEPHEDRINE HYDROCHLORIDE
     Indication: HYPERSENSITIVITY
     Route: 048
     Dates: start: 201705

REACTIONS (4)
  - Eye allergy [Not Recovered/Not Resolved]
  - Medication residue present [Unknown]
  - Drug ineffective [Unknown]
  - Sneezing [Not Recovered/Not Resolved]
